FAERS Safety Report 9264225 (Version 1)
Quarter: 2013Q2

REPORT INFORMATION
  Report Type: Report from Study
  Country: VE (occurrence: VE)
  Receive Date: 20130430
  Receipt Date: 20130430
  Transmission Date: 20140414
  Serious: Yes (Hospitalization, Other)
  Sender: FDA-Public Use
  Company Number: VE-ABBOTT-13P-178-1082086-00

PATIENT
  Age: 43 Year
  Sex: Male
  Weight: 100 kg

DRUGS (1)
  1. HUMIRA [Suspect]
     Indication: PSORIASIS
     Dosage: EVERY 15 DAYS
     Route: 058
     Dates: start: 20110301, end: 20121212

REACTIONS (2)
  - Inguinal hernia [Recovered/Resolved]
  - Anal abscess [Recovered/Resolved]
